FAERS Safety Report 9507865 (Version 1)
Quarter: 2013Q1

REPORT INFORMATION
  Report Type: Spontaneous
  Country: US (occurrence: None)
  Receive Date: 20130305
  Receipt Date: 20130305
  Transmission Date: 20140127
  Serious: Yes (Other)
  Sender: FDA-Public Use
  Company Number: 163-21880-12030527

PATIENT
  Age: 57 Year
  Sex: Male

DRUGS (6)
  1. REVLIMID (LENALIDOMIDE) (25 MILLIGRAM, CAPSULES) [Suspect]
     Indication: PLASMA CELL MYELOMA
     Dosage: 25 MG, DAILY D1-21 / 28D, PO
     Route: 048
     Dates: start: 20120127
  2. CARFILZOMIB (CARFILZOMIB) (UNKNOWN) [Concomitant]
  3. ACYCLOVIR (ACYCLOVIR (UNKNOWN) [Concomitant]
  4. FLUOXETINE (FLUOXETINE) (UNKNOWN) [Concomitant]
  5. DEXAMETHASONE (DEXAMETHASONE) (UNKNOWN) [Concomitant]
  6. PANTOPRAZOLE [Concomitant]

REACTIONS (1)
  - Renal failure [None]
